FAERS Safety Report 8186075-5 (Version None)
Quarter: 2012Q1

REPORT INFORMATION
  Report Type: 
  Country: None (occurrence: None)
  Receive Date: 20120306
  Receipt Date: 20120229
  Transmission Date: 20120608
  Serious: No
  Sender: FDA-Public Use
  Company Number: US-BIOGENIDEC-2012BI007483

PATIENT
  Sex: Female

DRUGS (2)
  1. TYSABRI [Suspect]
     Indication: MULTIPLE SCLEROSIS
     Route: 042
     Dates: start: 20080505, end: 20080630
  2. TYSABRI [Suspect]
     Route: 042
     Dates: start: 20091104

REACTIONS (3)
  - HEADACHE [None]
  - GASTROENTERITIS VIRAL [None]
  - ABDOMINAL PAIN UPPER [None]
